FAERS Safety Report 5841960-1 (Version None)
Quarter: 2008Q3

REPORT INFORMATION
  Report Type: 
  Country: None (occurrence: None)
  Receive Date: 20080812
  Receipt Date: 20050601
  Transmission Date: 20090109
  Serious: Yes (Other)
  Sender: FDA-Public Use
  Company Number: US-MERCK-0411USA03192

PATIENT
  Age: 37 Year
  Sex: Female

DRUGS (3)
  1. SINGULAIR [Suspect]
     Route: 048
     Dates: end: 20040802
  2. SEREVENT [Concomitant]
     Route: 065
     Dates: end: 20040720
  3. PULMICORT-100 [Concomitant]
     Route: 065
     Dates: end: 20040802

REACTIONS (2)
  - ADVERSE EVENT [None]
  - DRUG EXPOSURE DURING PREGNANCY [None]
